FAERS Safety Report 9551632 (Version 2)
Quarter: 2013Q4

REPORT INFORMATION
  Report Type: Report from Study
  Country: DE (occurrence: DE)
  Receive Date: 20130925
  Receipt Date: 20131002
  Transmission Date: 20140711
  Serious: Yes (Hospitalization)
  Sender: FDA-Public Use
  Company Number: DE-INCYTE CORPORATION-2013IN002138

PATIENT
  Sex: Male
  Weight: 74 kg

DRUGS (10)
  1. INCB018424 [Suspect]
     Indication: MYELOFIBROSIS
     Dosage: 15 MG, BID
     Route: 048
     Dates: start: 20130305, end: 20130320
  2. INCB018424 [Suspect]
     Dosage: 15 MG, BID
     Route: 048
     Dates: start: 20130330
  3. ASS [Concomitant]
     Dosage: UNK
  4. CLOPIDOGREL [Concomitant]
     Dosage: UNK
  5. METOPROLOL [Concomitant]
     Dosage: UNK
  6. FELODIPINE [Concomitant]
     Dosage: UNK
  7. PRAVASTATIN [Concomitant]
     Dosage: UNK
  8. PANTOPRAZOLE [Concomitant]
     Dosage: UNK
  9. SPIRIVA [Concomitant]
     Dosage: UNK
  10. BECLOMETASONE [Concomitant]
     Dosage: UNK

REACTIONS (1)
  - Myocardial infarction [Recovered/Resolved]
